FAERS Safety Report 10165551 (Version 2)
Quarter: 2014Q2

REPORT INFORMATION
  Report Type: Spontaneous
  Country: US (occurrence: US)
  Receive Date: 20140510
  Receipt Date: 20140510
  Transmission Date: 20141212
  Serious: No
  Sender: FDA-Public Use
  Company Number: US-BRISTOL-MYERS SQUIBB COMPANY-19860881

PATIENT
  Age: 74 Year
  Sex: Female
  Weight: 77.1 kg

DRUGS (2)
  1. BYDUREON [Suspect]
     Indication: TYPE 2 DIABETES MELLITUS
     Dosage: THERAPY ON 23NOV13
     Route: 058
     Dates: start: 20131108
  2. METFORMIN HCL [Suspect]

REACTIONS (4)
  - Impaired healing [Unknown]
  - Injection site vesicles [Not Recovered/Not Resolved]
  - Blood glucose increased [Unknown]
  - Drug administration error [Unknown]
